FAERS Safety Report 9673102 (Version 2)
Quarter: 2014Q1

REPORT INFORMATION
  Report Type: Spontaneous
  Country: US (occurrence: US)
  Receive Date: 20131106
  Receipt Date: 20140117
  Transmission Date: 20141002
  Serious: Yes (Other)
  Sender: FDA-Public Use
  Company Number: US-AMGEN-USASP2013069876

PATIENT
  Age: 69 Year
  Sex: Female

DRUGS (3)
  1. ENBREL [Suspect]
     Indication: RHEUMATOID ARTHRITIS
     Dosage: 50 MG ONCE A WEEK
     Route: 065
     Dates: start: 20060801, end: 20130524
  2. HUMIRA [Concomitant]
     Dosage: 50 MG EVERY OTHER WEEK
     Dates: start: 20130621
  3. LEFLUNOMIDE [Concomitant]
     Dosage: ONCE A DAY EVERY 6 WEEKS
     Dates: start: 201310

REACTIONS (2)
  - Parkinson^s disease [Not Recovered/Not Resolved]
  - Drug effect decreased [Not Recovered/Not Resolved]
